APPROVED DRUG PRODUCT: DIETHYLPROPION HYDROCHLORIDE
Active Ingredient: DIETHYLPROPION HYDROCHLORIDE
Strength: 25MG
Dosage Form/Route: TABLET;ORAL
Application: A201212 | Product #001 | TE Code: AA
Applicant: AVANTHI INC
Approved: Dec 22, 2010 | RLD: No | RS: No | Type: RX